FAERS Safety Report 8193833-X (Version None)
Quarter: 2012Q1

REPORT INFORMATION
  Report Type: 
  Country: None (occurrence: None)
  Receive Date: 20120308
  Receipt Date: 20120305
  Transmission Date: 20120608
  Serious: No
  Sender: FDA-Public Use
  Company Number: US-TEVA-326668USA

PATIENT
  Sex: Female

DRUGS (2)
  1. ORTHO TRI-CYCLEN [Concomitant]
     Indication: CONTRACEPTION
  2. PLAN B ONE-STEP [Suspect]
     Indication: POST COITAL CONTRACEPTION
     Dosage: 1.5 MILLIGRAM;
     Route: 048
     Dates: start: 20120229, end: 20120229

REACTIONS (5)
  - PELVIC PAIN [None]
  - CYSTITIS [None]
  - DYSURIA [None]
  - POLLAKIURIA [None]
  - HYPOAESTHESIA [None]
